FAERS Safety Report 9651192 (Version 1)
Quarter: 2013Q4

REPORT INFORMATION
  Report Type: Spontaneous
  Country: US (occurrence: US)
  Receive Date: 20131029
  Receipt Date: 20131029
  Transmission Date: 20140711
  Serious: No
  Sender: FDA-Public Use
  Company Number: US-BIOGENIDEC-2013BI070507

PATIENT
  Age: 43 Year
  Sex: Female

DRUGS (5)
  1. TECFIDERA [Suspect]
     Indication: MULTIPLE SCLEROSIS
     Route: 048
     Dates: start: 20130702
  2. VOLTAREN [Concomitant]
  3. AMITRIPTYLINE HCL [Concomitant]
  4. EXCEDRIN MIGRAINE [Concomitant]
  5. SUDAFED 24 HOUR [Concomitant]

REACTIONS (3)
  - Decreased appetite [Recovered/Resolved]
  - Headache [Unknown]
  - Nausea [Recovered/Resolved]
